FAERS Safety Report 10214135 (Version 2)
Quarter: 2014Q4

REPORT INFORMATION
  Report Type: Spontaneous
  Country: MY (occurrence: MY)
  Receive Date: 20140603
  Receipt Date: 20141118
  Transmission Date: 20150528
  Serious: Yes (Other)
  Sender: FDA-Public Use
  Company Number: MY-PFIZER INC-2014149408

PATIENT
  Age: 57 Year
  Sex: Female
  Weight: 65 kg

DRUGS (8)
  1. SIMVASTATIN. [Concomitant]
     Active Substance: SIMVASTATIN
     Indication: DYSLIPIDAEMIA
     Dosage: 20 MG, 1X/DAY
     Dates: start: 20111020
  2. MINIPRESS [Suspect]
     Active Substance: PRAZOSIN HYDROCHLORIDE
     Indication: HYPERTENSION
     Dosage: 2 MG, DAILY
     Route: 048
     Dates: start: 20130111, end: 20130111
  3. FISH OIL [Concomitant]
     Active Substance: FISH OIL
     Dosage: UNK, AS NEEDED
     Dates: start: 2012
  4. ISOPHANE INSULIN [Concomitant]
     Active Substance: INSULIN NOS
     Indication: TYPE 2 DIABETES MELLITUS
     Dosage: 24 IU 1X/DAY
     Dates: start: 20111020
  5. INDAPAMIDE/PERINDOPRIL ERBUMINE [Concomitant]
     Indication: HYPERTENSION
     Dosage: 4/1.25MG, 1X/DAY
     Dates: start: 20111020
  6. ASPIRIN. [Concomitant]
     Active Substance: ASPIRIN
     Indication: CARDIOVASCULAR EVENT PROPHYLAXIS
     Dosage: 150 MG, 1X/DAY
     Dates: start: 20111020
  7. AMLODIPINE [Concomitant]
     Active Substance: AMLODIPINE BESYLATE
     Indication: HYPERTENSION
     Dosage: 10 MG, 1X/DAY
     Dates: start: 20111020
  8. ACTRAPID [Concomitant]
     Active Substance: INSULIN HUMAN
     Indication: TYPE 2 DIABETES MELLITUS
     Dosage: 20IU, 3X/DAY
     Dates: start: 20120611

REACTIONS (3)
  - Dizziness [Recovered/Resolved]
  - Palpitations [Recovered/Resolved]
  - Loss of consciousness [Recovered/Resolved]

NARRATIVE: CASE EVENT DATE: 20130111
